FAERS Safety Report 9413371 (Version 1)
Quarter: 2013Q3

REPORT INFORMATION
  Report Type: Spontaneous
  Country: US (occurrence: None)
  Receive Date: 20130709
  Receipt Date: 20130709
  Transmission Date: 20140515
  Serious: Yes (Other)
  Sender: FDA-Public Use
  Company Number: 09-AUR-09625

PATIENT
  Age: 63 Year
  Sex: Female

DRUGS (4)
  1. FLUOXETINE [Suspect]
     Indication: MAJOR DEPRESSION
  2. FLUOXETINE [Suspect]
     Indication: INSOMNIA
  3. MIRTAZAPINE (MIRTAZAPINE) [Suspect]
     Indication: MAJOR DEPRESSION
  4. MIRTAZAPINE (MIRTAZAPINE) [Suspect]
     Indication: INSOMNIA

REACTIONS (4)
  - Restless legs syndrome [None]
  - Paraesthesia [None]
  - Dyskinesia [None]
  - Periodic limb movement disorder [None]
